FAERS Safety Report 9055986 (Version 2)
Quarter: 2013Q1

REPORT INFORMATION
  Report Type: Spontaneous
  Country: US (occurrence: US)
  Receive Date: 20130205
  Receipt Date: 20130328
  Transmission Date: 20140127
  Serious: Yes (Hospitalization)
  Sender: FDA-Public Use
  Company Number: US-JNJFOC-20130112714

PATIENT
  Sex: Female
  Weight: 86.18 kg

DRUGS (9)
  1. REMICADE [Suspect]
     Indication: COLITIS ULCERATIVE
     Dosage: DOSE: 400-450 MG
     Route: 042
     Dates: start: 201201, end: 201206
  2. REMICADE [Suspect]
     Indication: COLITIS ULCERATIVE
     Dosage: DOSE: 400-450 MG
     Route: 042
  3. REMICADE [Suspect]
     Indication: COLITIS ULCERATIVE
     Dosage: DOSE: 400-450 MG
     Route: 042
     Dates: start: 201206
  4. REMICADE [Suspect]
     Indication: COLITIS ULCERATIVE
     Dosage: DOSE: 400-450 MG
     Route: 042
     Dates: start: 201109, end: 201201
  5. BENADRYL [Concomitant]
     Indication: PREMEDICATION
     Route: 065
     Dates: start: 201109, end: 2012
  6. HYDROCORTISONE [Concomitant]
     Indication: PREMEDICATION
     Route: 065
     Dates: start: 2011
  7. HYDROCORTISONE [Concomitant]
     Indication: PREMEDICATION
     Route: 065
     Dates: start: 201109, end: 2011
  8. CLARITIN [Concomitant]
     Indication: PREMEDICATION
     Route: 065
  9. EYE MEDICATIONS [Concomitant]
     Indication: AGE-RELATED MACULAR DEGENERATION
     Route: 047
     Dates: start: 201106

REACTIONS (9)
  - Thyroid cancer [Not Recovered/Not Resolved]
  - Laboratory test abnormal [Not Recovered/Not Resolved]
  - Urticaria [Recovered/Resolved]
  - Arthralgia [Not Recovered/Not Resolved]
  - Drug effect decreased [Not Recovered/Not Resolved]
  - Laboratory test abnormal [Not Recovered/Not Resolved]
  - Weight fluctuation [Not Recovered/Not Resolved]
  - Pruritus [Not Recovered/Not Resolved]
  - Infusion related reaction [Not Recovered/Not Resolved]
